FAERS Safety Report 14774523 (Version 1)
Quarter: 2018Q2

REPORT INFORMATION
  Report Type: Spontaneous
  Country: US (occurrence: US)
  Receive Date: 20180418
  Receipt Date: 20180418
  Transmission Date: 20180711
  Serious: Yes (Hospitalization)
  Sender: FDA-Public Use
  Company Number: US-MYLANLABS-2018M1024748

PATIENT
  Age: 36 Year
  Sex: Male

DRUGS (2)
  1. BUPIVACAINE. [Suspect]
     Active Substance: BUPIVACAINE
     Indication: PAIN MANAGEMENT
     Dosage: INTRATHECAL CATHETER AND DRUG INFUSION PUMP; BUPIVACAINE CONCENTRATION 35 MG/ML
     Route: 037
     Dates: start: 2010
  2. FENTANYL. [Suspect]
     Active Substance: FENTANYL
     Indication: PAIN MANAGEMENT
     Dosage: INTRATHECAL CATHETER AND DRUG INFUSION PUMP; FENTANYL CONCENTRATION 14 MG/ML
     Route: 037
     Dates: start: 2010

REACTIONS (3)
  - Catheter site granuloma [Recovering/Resolving]
  - Spinal cord compression [Recovering/Resolving]
  - Gait inability [Recovering/Resolving]
